FAERS Safety Report 6712890-8 (Version None)
Quarter: 2010Q2

REPORT INFORMATION
  Report Type: 
  Country: None (occurrence: None)
  Receive Date: 20100505
  Receipt Date: 20100505
  Transmission Date: 20101027
  Serious: Yes (Life-Threatening)
  Sender: FDA-Public Use
  Company Number: None

PATIENT

DRUGS (1)
  1. ZYRTEC [Suspect]

REACTIONS (7)
  - ABDOMINAL PAIN [None]
  - DIARRHOEA [None]
  - LETHARGY [None]
  - MALAISE [None]
  - OROPHARYNGEAL PAIN [None]
  - SOMNOLENCE [None]
  - VOMITING [None]
